FAERS Safety Report 9376192 (Version 1)
Quarter: 2013Q2

REPORT INFORMATION
  Report Type: Spontaneous
  Country: US (occurrence: None)
  Receive Date: 20130628
  Receipt Date: 20130628
  Transmission Date: 20140414
  Serious: Yes (Hospitalization, Other)
  Sender: FDA-Public Use
  Company Number: None

PATIENT
  Sex: Female

DRUGS (4)
  1. DIVALPROEX SODIUM [Suspect]
     Indication: EPILEPSY
     Route: 048
     Dates: start: 200404
  2. DIVALPROEX SODIUM [Suspect]
     Route: 048
     Dates: start: 200404
  3. DIVALPROEX SODIUM [Suspect]
     Route: 048
     Dates: start: 200404
  4. DIVALPROEX SODIUM [Suspect]
     Route: 048
     Dates: start: 200404

REACTIONS (7)
  - Fall [None]
  - Convulsion [None]
  - Humerus fracture [None]
  - Wrist fracture [None]
  - Jaw fracture [None]
  - Grand mal convulsion [None]
  - Condition aggravated [None]
